FAERS Safety Report 15879800 (Version 2)
Quarter: 2019Q1

REPORT INFORMATION
  Report Type: Spontaneous
  Country: HU (occurrence: HU)
  Receive Date: 20190128
  Receipt Date: 20190207
  Transmission Date: 20190417
  Serious: Yes (Other)
  Sender: FDA-Public Use
  Company Number: HU-PFIZER INC-2019034488

PATIENT
  Age: 23 Year
  Sex: Female

DRUGS (6)
  1. AMISULPRID [Concomitant]
     Active Substance: AMISULPRIDE
     Indication: PSYCHOTIC DISORDER
     Dosage: UNK
  2. AZATHIOPRINE. [Suspect]
     Active Substance: AZATHIOPRINE
     Indication: IMMUNOSUPPRESSANT DRUG THERAPY
     Dosage: UNK
     Route: 065
     Dates: start: 201501, end: 201606
  3. ARIPIPRAZOL [Suspect]
     Active Substance: ARIPIPRAZOLE
     Indication: PSYCHOTIC DISORDER
     Dosage: UNK
  4. AZATHIOPRINE. [Suspect]
     Active Substance: AZATHIOPRINE
     Indication: ENCEPHALITIS AUTOIMMUNE
  5. CLOZAPINE. [Concomitant]
     Active Substance: CLOZAPINE
     Indication: PSYCHOTIC DISORDER
     Dosage: UNK
     Route: 065
     Dates: start: 201412, end: 201505
  6. METHYLPREDNISOLONE. [Suspect]
     Active Substance: METHYLPREDNISOLONE
     Indication: ENCEPHALITIS AUTOIMMUNE
     Dosage: UNK
     Route: 065
     Dates: start: 201412

REACTIONS (9)
  - Abulia [Recovered/Resolved]
  - Amenorrhoea [Recovered/Resolved]
  - Cushingoid [Recovered/Resolved]
  - Hypothyroidism [Recovered/Resolved]
  - Akathisia [Recovered/Resolved]
  - Skin striae [Recovered/Resolved]
  - Oedema [Recovered/Resolved]
  - Weight increased [Recovered/Resolved]
  - Apathy [Recovered/Resolved]

NARRATIVE: CASE EVENT DATE: 2015
